APPROVED DRUG PRODUCT: HYDROMORPHONE HYDROCHLORIDE
Active Ingredient: HYDROMORPHONE HYDROCHLORIDE
Strength: 24MG
Dosage Form/Route: TABLET, EXTENDED RELEASE;ORAL
Application: A205629 | Product #005
Applicant: OSMOTICA PHARMACEUTICAL US LLC
Approved: Oct 30, 2024 | RLD: No | RS: No | Type: RX